FAERS Safety Report 7465856-7 (Version None)
Quarter: 2011Q2

REPORT INFORMATION
  Report Type: 
  Country: None (occurrence: None)
  Receive Date: 20110509
  Receipt Date: 20100420
  Transmission Date: 20111010
  Serious: No
  Sender: FDA-Public Use
  Company Number: US-ALEXION-A201000297

PATIENT
  Sex: Female

DRUGS (5)
  1. IRON [Concomitant]
     Dosage: UNK
     Route: 048
  2. FOLIC ACID W/VITAMINS NOS [Concomitant]
     Dosage: UNK
     Route: 048
  3. SOLIRIS [Suspect]
     Dosage: 900 MG, Q2W
     Route: 042
     Dates: start: 20090908
  4. TYLENOL (CAPLET) [Concomitant]
  5. SOLIRIS [Suspect]
     Indication: PAROXYSMAL NOCTURNAL HAEMOGLOBINURIA
     Dosage: 600 MG, QW
     Route: 042
     Dates: start: 20090811, end: 20090901

REACTIONS (3)
  - HEADACHE [None]
  - PHOTOPHOBIA [None]
  - LACRIMATION INCREASED [None]
